FAERS Safety Report 5819406-9 (Version None)
Quarter: 2008Q3

REPORT INFORMATION
  Report Type: 
  Country: None (occurrence: None)
  Receive Date: 20080717
  Receipt Date: 20080708
  Transmission Date: 20090109
  Serious: Yes (Other)
  Sender: FDA-Public Use
  Company Number: 2008SP013934

PATIENT
  Age: 58 Year
  Sex: Male

DRUGS (2)
  1. CONSTIPAL (DEXBROMPHENIRAMINE MALEATE/PSEUDOEPHEDRINE SULFATE) (DEXBRO [Suspect]
     Indication: DRUG USE FOR UNKNOWN INDICATION
     Dosage: 2 DF; PO
     Route: 048
     Dates: start: 20080308, end: 20080312
  2. ACETYLSALICYLIC ACID (CON.) [Concomitant]

REACTIONS (1)
  - LOSS OF CONSCIOUSNESS [None]
